FAERS Safety Report 8548171-X (Version None)
Quarter: 2012Q3

REPORT INFORMATION
  Report Type: 
  Country: None (occurrence: None)
  Receive Date: 20120730
  Receipt Date: 20120718
  Transmission Date: 20120928
  Serious: Yes (Hospitalization)
  Sender: FDA-Public Use
  Company Number: US-BIOGENIDEC-2012BI021542

PATIENT
  Age: 53 Year
  Sex: Female

DRUGS (1)
  1. AVONEX [Suspect]
     Indication: MULTIPLE SCLEROSIS
     Route: 030
     Dates: start: 20031118

REACTIONS (5)
  - FIBULA FRACTURE [None]
  - FALL [None]
  - OPEN FRACTURE [None]
  - TIBIA FRACTURE [None]
  - ANKLE FRACTURE [None]
